FAERS Safety Report 5951445-X (Version None)
Quarter: 2008Q4

REPORT INFORMATION
  Report Type: 
  Country: None (occurrence: None)
  Receive Date: 20081022
  Receipt Date: 20080728
  Transmission Date: 20090506
  Serious: No
  Sender: FDA-Public Use
  Company Number: ALL1-2008-02127

PATIENT
  Sex: Male

DRUGS (1)
  1. VYVANSE [Suspect]

REACTIONS (2)
  - ADVERSE EVENT [None]
  - SOCIAL PROBLEM [None]
